FAERS Safety Report 17870585 (Version 2)
Quarter: 2020Q2

REPORT INFORMATION
  Report Type: Spontaneous
  Country: US (occurrence: US)
  Receive Date: 20200608
  Receipt Date: 20200610
  Transmission Date: 20200714
  Serious: No
  Sender: FDA-Public Use
  Company Number: US-PFIZER INC-2020221775

PATIENT
  Sex: Female

DRUGS (2)
  1. ZOLOFT [Suspect]
     Active Substance: SERTRALINE HYDROCHLORIDE
     Dosage: 75 MG, DAILY
  2. ZOLOFT [Suspect]
     Active Substance: SERTRALINE HYDROCHLORIDE
     Dosage: 25 MG, 3X/DAY (THREE 25 A DAY)

REACTIONS (5)
  - Intentional product misuse [Unknown]
  - Feeling abnormal [Unknown]
  - Nervousness [Unknown]
  - Anxiety [Unknown]
  - Feeling jittery [Unknown]
